FAERS Safety Report 8121633-5 (Version None)
Quarter: 2012Q1

REPORT INFORMATION
  Report Type: 
  Country: None (occurrence: None)
  Receive Date: 20120208
  Receipt Date: 20120208
  Transmission Date: 20120608
  Serious: Yes (Hospitalization)
  Sender: FDA-Public Use
  Company Number: None

PATIENT
  Sex: Male
  Weight: 109.76 kg

DRUGS (1)
  1. ATELVIA [Suspect]
     Indication: OSTEOPOROSIS
     Route: 048

REACTIONS (1)
  - ABDOMINAL PAIN [None]
